FAERS Safety Report 6921945-4 (Version None)
Quarter: 2010Q3

REPORT INFORMATION
  Report Type: 
  Country: None (occurrence: None)
  Receive Date: 20100812
  Receipt Date: 20100809
  Transmission Date: 20110219
  Serious: Yes (Death, Hospitalization)
  Sender: FDA-Public Use
  Company Number: NL-TEVA-244142ISR

PATIENT
  Age: 75 Year
  Sex: Male

DRUGS (2)
  1. FLUDARABINE [Suspect]
     Indication: CHRONIC LYMPHOCYTIC LEUKAEMIA
  2. CYCLOPHOSPHAMIDE [Concomitant]

REACTIONS (3)
  - DEATH [None]
  - HISTIOCYTOSIS HAEMATOPHAGIC [None]
  - HODGKIN'S DISEASE [None]
